FAERS Safety Report 25751483 (Version 4)
Quarter: 2025Q4

REPORT INFORMATION
  Report Type: Report from Study
  Country: GB (occurrence: GB)
  Receive Date: 20250902
  Receipt Date: 20251022
  Transmission Date: 20260118
  Serious: Yes (Hospitalization)
  Sender: ITALFARMACO SPA
  Company Number: GB-ITALFARMACO SPA-2183655

PATIENT
  Age: 8 Year
  Sex: Male
  Weight: 23.40 kg

DRUGS (5)
  1. DUVYZAT [Suspect]
     Active Substance: GIVINOSTAT
     Indication: Duchenne muscular dystrophy
     Dates: start: 20250808, end: 20250821
  2. DEFLAZACORT [Concomitant]
     Active Substance: DEFLAZACORT
  3. VITAMIN D [Concomitant]
     Active Substance: VITAMIN D NOS
  4. MELATONIN [Concomitant]
     Active Substance: MELATONIN
  5. LISINOPRIL [Concomitant]
     Active Substance: LISINOPRIL

REACTIONS (4)
  - Lymphopenia [Recovered/Resolved]
  - Epistaxis [Recovered/Resolved]
  - Petechiae [Recovered/Resolved]
  - Thrombocytopenia [Recovered/Resolved]

NARRATIVE: CASE EVENT DATE: 20250821
